FAERS Safety Report 4667521-8 (Version None)
Quarter: 2005Q2

REPORT INFORMATION
  Report Type: 
  Country: None (occurrence: None)
  Receive Date: 20050519
  Receipt Date: 20050519
  Transmission Date: 20051028
  Serious: No
  Sender: FDA-Public Use
  Company Number: None

PATIENT
  Age: 57 Year
  Sex: Male

DRUGS (13)
  1. TAXOL [Suspect]
     Indication: TONGUE NEOPLASM
     Dosage: 310MG    INTRAVENOU
     Route: 042
     Dates: start: 20050413, end: 20050413
  2. NYSTATIN ORAL SYRUP [Concomitant]
  3. COMPAZNE [Concomitant]
  4. COUMADIN [Concomitant]
  5. DECADRON [Concomitant]
  6. ZOFRAN [Concomitant]
  7. CARBOPLATIN [Concomitant]
  8. TAGAMET [Concomitant]
  9. BENADRYL [Concomitant]
  10. PILOCARPINE [Concomitant]
  11. TRENTAL [Concomitant]
  12. ASPIRIN [Concomitant]
  13. ZOCOR [Concomitant]

REACTIONS (2)
  - HYPOTENSION [None]
  - INFUSION RELATED REACTION [None]
